FAERS Safety Report 10402298 (Version 1)
Quarter: 2014Q3

REPORT INFORMATION
  Report Type: Spontaneous
  Country: GB (occurrence: None)
  Receive Date: 20140819
  Receipt Date: 20140819
  Transmission Date: 20150326
  Serious: Yes (Hospitalization)
  Sender: FDA-Public Use
  Company Number: AUR-APL-2014-08677

PATIENT
  Age: 47 Year
  Sex: Male
  Weight: 72 kg

DRUGS (6)
  1. PROPANOLOL (PROPANOLOL) [Concomitant]
  2. ZOPICLONE (ZOPICLONE) [Concomitant]
     Active Substance: ZOPICLONE
  3. QUETIAPINE (QUETIAPINE) [Suspect]
     Active Substance: QUETIAPINE
     Indication: BIPOLAR DISORDER
     Route: 048
  4. CITALOPRAM (CITALOPRAM) [Concomitant]
     Active Substance: CITALOPRAM HYDROBROMIDE
  5. LITHIUM [Concomitant]
     Active Substance: LITHIUM CARBONATE
  6. SODIUM VALPROATE (VALPROATE SODIUM) [Concomitant]
     Active Substance: VALPROATE SODIUM

REACTIONS (2)
  - Incorrect dose administered [None]
  - Cardiomyopathy [None]

NARRATIVE: CASE EVENT DATE: 20130728
